FAERS Safety Report 6096050-2 (Version None)
Quarter: 2009Q1

REPORT INFORMATION
  Report Type: 
  Country: None (occurrence: None)
  Receive Date: 20090227
  Receipt Date: 20080819
  Transmission Date: 20090719
  Serious: No
  Sender: FDA-Public Use
  Company Number: A0743311A

PATIENT
  Age: 40 Year
  Sex: Female

DRUGS (4)
  1. LAMICTAL [Suspect]
     Indication: BIPOLAR DISORDER
     Dosage: 50MG PER DAY
     Route: 048
     Dates: start: 20080801
  2. FLUOXETINE [Concomitant]
  3. TYLENOL [Concomitant]
  4. FLONASE [Concomitant]

REACTIONS (2)
  - HEADACHE [None]
  - MYALGIA [None]
